FAERS Safety Report 5745111-3 (Version None)
Quarter: 2008Q2

REPORT INFORMATION
  Report Type: 
  Country: None (occurrence: None)
  Receive Date: 20080521
  Receipt Date: 20080514
  Transmission Date: 20081010
  Serious: Yes (Hospitalization, Other)
  Sender: FDA-Public Use
  Company Number: PHHY2008JP08042

PATIENT
  Age: 58 Year
  Sex: Female

DRUGS (10)
  1. RISPERIDONE [Concomitant]
     Indication: BIPOLAR DISORDER
     Dosage: 1 MG/DAY
     Route: 048
  2. QUETIAPINE FUMARATE [Concomitant]
     Indication: DYSAESTHESIA
     Dosage: 150 MG
     Route: 048
  3. OLANZAPINE [Concomitant]
     Indication: DYSAESTHESIA
     Dosage: 5 MG
     Route: 048
  4. FLUVOXAMINE MALEATE [Concomitant]
     Indication: BIPOLAR DISORDER
     Dosage: 100 MG
     Route: 048
  5. SULPIRIDE [Concomitant]
     Indication: ANOREXIA
     Dosage: 150 MG
     Route: 048
  6. SULPIRIDE [Concomitant]
     Dosage: 300 MG
     Route: 048
  7. LUDIOMIL [Suspect]
     Indication: BIPOLAR DISORDER
     Dosage: 75 MG/DAY
     Route: 048
  8. LUDIOMIL [Suspect]
     Dosage: 75 MG/DAY
     Route: 048
  9. LUDIOMIL [Suspect]
     Dosage: 100 MG/DAY
     Route: 048
  10. LUDIOMIL [Suspect]
     Dosage: 50 MG/DAY
     Route: 048

REACTIONS (2)
  - ORAL DISCOMFORT [None]
  - PARKINSONISM [None]
